FAERS Safety Report 25262493 (Version 1)
Quarter: 2025Q2

REPORT INFORMATION
  Report Type: Spontaneous
  Country: CZ (occurrence: CZ)
  Receive Date: 20250502
  Receipt Date: 20250502
  Transmission Date: 20250717
  Serious: Yes (Hospitalization, Other)
  Sender: CELLTRION
  Company Number: CZ-CELLTRION INC.-2025CZ012589

PATIENT

DRUGS (1)
  1. YUFLYMA [Suspect]
     Active Substance: ADALIMUMAB-AATY
     Indication: Product used for unknown indication
     Dates: start: 20250310

REACTIONS (2)
  - Hepatic cyst ruptured [Recovered/Resolved]
  - Hepatic cyst [Recovered/Resolved]

NARRATIVE: CASE EVENT DATE: 20250322
